FAERS Safety Report 4313999-9 (Version None)
Quarter: 2004Q1

REPORT INFORMATION
  Report Type: 
  Country: None (occurrence: None)
  Receive Date: 20040305
  Receipt Date: 20040227
  Transmission Date: 20041129
  Serious: Yes (Hospitalization, Disabling, Other)
  Sender: FDA-Public Use
  Company Number: 2003117708

PATIENT
  Age: 44 Year
  Sex: Female
  Weight: 83 kg

DRUGS (7)
  1. RELPAX [Suspect]
     Indication: MIGRAINE
     Dosage: 40 MG (ONCE), ORAL
     Route: 048
     Dates: start: 20031107, end: 20031107
  2. SUMATRIPTAN SUCCINATE [Suspect]
  3. LEVOTHYROXINE SODIUM [Suspect]
     Indication: HYPOTHYROIDISM
     Dosage: 75 MCG (DAILY), ORAL
     Route: 048
     Dates: start: 20030501
  4. DIAZEPAM [Suspect]
     Indication: ANXIETY
     Dosage: 10 MG (BID), ORAL
     Route: 048
     Dates: start: 20030501
  5. DILTIAZEM HYDROCHLORIDE [Suspect]
     Indication: ILL-DEFINED DISORDER
     Dosage: 180 MG (BID),ORAL
     Route: 048
     Dates: start: 20030501
  6. FLUOXETINE HCL [Suspect]
     Indication: DYSTHYMIC DISORDER
     Dosage: 40 MG (BID), ORAL
     Route: 048
     Dates: start: 20030501
  7. OXYBUTYNIN HYDROCHLORIDE (OXYBUTYNIN HYDROCHLORIDE) [Concomitant]

REACTIONS (3)
  - AMAUROSIS [None]
  - AMNESIA [None]
  - TRANSIENT ISCHAEMIC ATTACK [None]
